FAERS Safety Report 10866172 (Version 1)
Quarter: 2015Q1

REPORT INFORMATION
  Report Type: Spontaneous
  Country: US (occurrence: None)
  Receive Date: 20150219
  Receipt Date: 20150219
  Transmission Date: 20150721
  Serious: Yes (Other)
  Sender: FDA-Public Use
  Company Number: None

PATIENT
  Age: 46 Year
  Sex: Male
  Weight: 145.15 kg

DRUGS (7)
  1. METOPROLOL [Concomitant]
     Active Substance: METOPROLOL
  2. ASPIRIN. [Concomitant]
     Active Substance: ASPIRIN
  3. SEPTOCAINE [Suspect]
     Active Substance: ARTICAINE HYDROCHLORIDE\EPINEPHRINE BITARTRATE
     Indication: LOCAL ANAESTHESIA
     Dosage: 4% 1 CAPSULE 1.7M2 INJECTION 3 CAPSULES
  4. BENAZIPRIL [Concomitant]
  5. METFORMIMN [Concomitant]
  6. ATROVASTATIN [Concomitant]
     Active Substance: ATORVASTATIN CALCIUM
  7. PRILOZAC [Concomitant]

REACTIONS (5)
  - Delayed recovery from anaesthesia [None]
  - Injection site paraesthesia [None]
  - Ear disorder [None]
  - Hypoaesthesia oral [None]
  - Hypoaesthesia [None]

NARRATIVE: CASE EVENT DATE: 20150121
